FAERS Safety Report 9164906 (Version 3)
Quarter: 2013Q2

REPORT INFORMATION
  Report Type: Report from Study
  Country: US (occurrence: US)
  Receive Date: 20130315
  Receipt Date: 20130604
  Transmission Date: 20140414
  Serious: No
  Sender: FDA-Public Use
  Company Number: US-VERTEX PHARMACEUTICALS INC.-2013-003599

PATIENT
  Age: 36 Year
  Sex: Female
  Weight: 116 kg

DRUGS (11)
  1. VX-950 (TELAPREVIR) [Suspect]
     Indication: HEPATITIS C
     Dosage: 750 MG, TID
     Route: 048
     Dates: start: 20130308, end: 20130530
  2. RIBAVIRIN [Suspect]
     Indication: HEPATITIS C
     Dosage: 600 MG, BID
     Dates: start: 20130308
  3. RIBAVIRIN [Suspect]
     Dosage: 600 MG, QD
     Dates: start: 20130508
  4. PEGASYS [Suspect]
     Indication: HEPATITIS C
     Dosage: 180 ?G, QW
     Route: 058
     Dates: start: 20130308
  5. MULTIVITAMIN [Concomitant]
  6. VITAMIN D3 [Concomitant]
     Dosage: 5000 UT
  7. VITAMIN B12 [Concomitant]
     Dosage: 1000 ?G
  8. MELOXICAM [Concomitant]
     Dosage: 15 MG
  9. GABAPENTIN [Concomitant]
     Dosage: 100 MG
  10. CYCLOBENZAPRIN HCL [Concomitant]
     Dosage: 15 MG
  11. VITAMIN C [Concomitant]
     Dosage: 500 MG

REACTIONS (15)
  - White blood cell count decreased [Not Recovered/Not Resolved]
  - Dizziness [Not Recovered/Not Resolved]
  - Dyspnoea [Unknown]
  - Parosmia [Unknown]
  - Headache [Unknown]
  - Influenza like illness [Unknown]
  - Vulvovaginal pruritus [Not Recovered/Not Resolved]
  - Insomnia [Unknown]
  - Pyrexia [Not Recovered/Not Resolved]
  - Chills [Unknown]
  - Hot flush [Unknown]
  - Fatigue [Not Recovered/Not Resolved]
  - Anaemia [Not Recovered/Not Resolved]
  - Anal pruritus [Not Recovered/Not Resolved]
  - Nausea [Unknown]
